FAERS Safety Report 16463088 (Version 2)
Quarter: 2019Q3

REPORT INFORMATION
  Report Type: Report from Study
  Country: US (occurrence: US)
  Receive Date: 20190621
  Receipt Date: 20190702
  Transmission Date: 20191004
  Serious: Yes (Life-Threatening, Hospitalization)
  Sender: FDA-Public Use
  Company Number: US-BIOGEN-2019BI00751974

PATIENT
  Age: 60 Year
  Sex: Male

DRUGS (2)
  1. TECFIDERA [Suspect]
     Active Substance: DIMETHYL FUMARATE
     Indication: MULTIPLE SCLEROSIS
     Dosage: MAINTENANCE DOSE
     Route: 048
     Dates: start: 2007
  2. COUMADIN [Suspect]
     Active Substance: WARFARIN SODIUM
     Indication: CEREBRAL THROMBOSIS
     Route: 065
     Dates: start: 2000, end: 2019

REACTIONS (6)
  - Cardiac arrest [Unknown]
  - Myocardial infarction [Unknown]
  - Internal haemorrhage [Unknown]
  - Cerebrovascular accident [Unknown]
  - Multiple sclerosis [Unknown]
  - Discomfort [Unknown]

NARRATIVE: CASE EVENT DATE: 201906
